FAERS Safety Report 5680902-9 (Version None)
Quarter: 2008Q1

REPORT INFORMATION
  Report Type: 
  Country: None (occurrence: None)
  Receive Date: 20080325
  Receipt Date: 20080318
  Transmission Date: 20080703
  Serious: Yes (Death, Other)
  Sender: FDA-Public Use
  Company Number: 163-21880-08020381

PATIENT
  Age: 77 Year
  Sex: Female

DRUGS (2)
  1. REVLIMID [Suspect]
     Indication: MYELODYSPLASTIC SYNDROME
     Dosage: 10-5 MG, DAILY, ORAL, 10 MG, DAILY; ORAL
     Route: 048
     Dates: start: 20070403, end: 20070501
  2. REVLIMID [Suspect]
     Indication: MYELODYSPLASTIC SYNDROME
     Dosage: 10-5 MG, DAILY, ORAL, 10 MG, DAILY; ORAL
     Route: 048
     Dates: start: 20071206, end: 20080101

REACTIONS (4)
  - ACUTE MYELOID LEUKAEMIA [None]
  - GENERALISED OEDEMA [None]
  - MALIGNANT NEOPLASM PROGRESSION [None]
  - MYELODYSPLASTIC SYNDROME [None]
